FAERS Safety Report 7292550-8 (Version None)
Quarter: 2011Q1

REPORT INFORMATION
  Report Type: 
  Country: None (occurrence: None)
  Receive Date: 20110215
  Receipt Date: 20101022
  Transmission Date: 20110831
  Serious: No
  Sender: FDA-Public Use
  Company Number: US-BAYER-201022895BCC

PATIENT
  Sex: Female
  Weight: 79.091 kg

DRUGS (4)
  1. ATENOLOL [Concomitant]
  2. ALEVE [Suspect]
     Indication: ARTHRITIS
     Dosage: 1 DF, QD
     Route: 048
     Dates: start: 20101021, end: 20101022
  3. EXFORGE [Concomitant]
  4. CHLOROTHIAZIDE [Concomitant]

REACTIONS (1)
  - HYPERTENSION [None]
